FAERS Safety Report 6443656-4 (Version None)
Quarter: 2009Q4

REPORT INFORMATION
  Report Type: 
  Country: None (occurrence: None)
  Receive Date: 20091117
  Receipt Date: 20091104
  Transmission Date: 20100525
  Serious: Yes (Other)
  Sender: FDA-Public Use
  Company Number: PHHY2009CA48287

PATIENT
  Sex: Male

DRUGS (2)
  1. CLOZARIL [Suspect]
     Dosage: UNK
     Dates: start: 20090210
  2. SUPRAX [Concomitant]

REACTIONS (3)
  - INFECTION [None]
  - NEUTROPENIA [None]
  - WHITE BLOOD CELL COUNT DECREASED [None]
